FAERS Safety Report 4674274-6 (Version None)
Quarter: 2005Q2

REPORT INFORMATION
  Report Type: 
  Country: None (occurrence: None)
  Receive Date: 20050524
  Receipt Date: 20050509
  Transmission Date: 20051028
  Serious: Yes (Other)
  Sender: FDA-Public Use
  Company Number: 2005063453

PATIENT
  Age: 80 Year
  Sex: Male

DRUGS (3)
  1. NEURONTIN [Suspect]
     Indication: POST HERPETIC NEURALGIA
     Dosage: 900 MG (300 MG, 3 IN 1 D), ORAL
     Route: 048
     Dates: start: 20050407
  2. PREDNISONE [Suspect]
     Indication: HERPES ZOSTER
     Dosage: 60 MG 91 IN 1 D)
     Dates: start: 20050331, end: 20050421
  3. VALTREX [Suspect]
     Indication: HERPES ZOSTER
     Dosage: 3 GRAM 91 GRAM, 3 IN 1 D)
     Dates: start: 20050331, end: 20050407

REACTIONS (3)
  - CONDITION AGGRAVATED [None]
  - THROMBOPHLEBITIS SUPERFICIAL [None]
  - VARICOSE VEIN [None]
